FAERS Safety Report 6474576-7 (Version None)
Quarter: 2009Q4

REPORT INFORMATION
  Report Type: 
  Country: None (occurrence: None)
  Receive Date: 20091201
  Receipt Date: 20091118
  Transmission Date: 20100525
  Serious: Yes (Hospitalization)
  Sender: FDA-Public Use
  Company Number: IDA-00296

PATIENT
  Age: 65 Year
  Sex: Female

DRUGS (5)
  1. AVLOCARDYL (PROPANOLOL) [Suspect]
     Indication: HYPERTENSION
     Dosage: ORAL
     Route: 048
     Dates: end: 20090415
  2. HYTACAND (CANDESARTAN, HYDROCHLOROTHIAZIDE) [Suspect]
     Indication: HYPERTENSION
     Dosage: ORAL
     Route: 048
     Dates: end: 20090415
  3. LERCANIDIPINE [Suspect]
     Indication: HYPERTENSION
     Dosage: 10 MG DAILY / 10 MG DAILY, TABLET, ORAL
     Route: 048
     Dates: end: 20090415
  4. RABEPRAZOLE SODIUM [Suspect]
     Dosage: ORAL
     Route: 048
     Dates: end: 20090415
  5. (PARACETAMOL) [Suspect]
     Indication: MIGRAINE
     Dosage: ORAL
     Route: 048
     Dates: end: 20090415

REACTIONS (2)
  - BLOOD PRESSURE ABNORMAL [None]
  - PANCREATITIS ACUTE [None]
